FAERS Safety Report 7083673-7 (Version None)
Quarter: 2010Q4

REPORT INFORMATION
  Report Type: 
  Country: None (occurrence: None)
  Receive Date: 20101103
  Receipt Date: 20101103
  Transmission Date: 20110411
  Serious: Yes (Life-Threatening, Other)
  Sender: FDA-Public Use
  Company Number: None

PATIENT
  Age: 46 Year
  Sex: Male
  Weight: 88.905 kg

DRUGS (1)
  1. NITRO-BID [Suspect]
     Indication: LEVATOR SYNDROME
     Dosage: MEASURING APPLICATOR ENCLOSED AS NEEDED TRANSDERMAL
     Route: 062
     Dates: start: 20101101, end: 20101101

REACTIONS (6)
  - DIZZINESS [None]
  - DYSPNOEA [None]
  - HEADACHE [None]
  - LOSS OF CONSCIOUSNESS [None]
  - NAUSEA [None]
  - PALPITATIONS [None]
